FAERS Safety Report 13889542 (Version 1)
Quarter: 2017Q3

REPORT INFORMATION
  Report Type: Spontaneous
  Country: US (occurrence: US)
  Receive Date: 20170822
  Receipt Date: 20170822
  Transmission Date: 20171127
  Serious: No
  Sender: FDA-Public Use
  Company Number: US-ROCHE-1423241

PATIENT
  Sex: Female

DRUGS (1)
  1. ACTEMRA [Suspect]
     Active Substance: TOCILIZUMAB
     Indication: JUVENILE IDIOPATHIC ARTHRITIS
     Route: 042
     Dates: start: 201405

REACTIONS (4)
  - Rheumatoid arthritis [Not Recovered/Not Resolved]
  - Joint swelling [Recovering/Resolving]
  - Pain in jaw [Not Recovered/Not Resolved]
  - Neck pain [Not Recovered/Not Resolved]
